FAERS Safety Report 10179382 (Version 2)
Quarter: 2014Q2

REPORT INFORMATION
  Report Type: Spontaneous
  Country: US (occurrence: None)
  Receive Date: 20140416
  Receipt Date: 20140604
  Transmission Date: 20141212
  Serious: Yes (Other)
  Sender: FDA-Public Use
  Company Number: 163-POMAL-13121623

PATIENT
  Age: 56 Year
  Sex: Male

DRUGS (9)
  1. POMALYST [Suspect]
     Indication: PLASMA CELL MYELOMA
     Dosage: QOD FOR 21 DAYS, PO
     Route: 048
     Dates: start: 20131107, end: 20131121
  2. COUMADIN (WARFARIN SODIUM) (TABLETS) [Concomitant]
  3. LOVENOX (HEPARIN-FRACTION, SODIUM SALT) (UNKNOWN) [Concomitant]
  4. ACYCLOVIR (ACICLOVIR) (TABLETS) [Concomitant]
  5. VITAMIN E (TOCOPHEROL) (UNKNOWN) [Concomitant]
  6. MULTIVITAMINS (MULTIVITAMINS) (TABLETS) [Concomitant]
  7. MAGNESIUM (MAGNESIUM) (UNKNOWN) [Concomitant]
  8. B COMPLETE (B COMPLETE) (TABLETS) [Concomitant]
  9. DEXAMETHASONE (DEXAMETHASONE) (UNKNOWN) [Concomitant]

REACTIONS (4)
  - Urticaria [None]
  - Myalgia [None]
  - Lower respiratory tract infection [None]
  - Pyrexia [None]
